FAERS Safety Report 20820246 (Version 1)
Quarter: 2022Q2

REPORT INFORMATION
  Report Type: Other
  Country: GB (occurrence: None)
  Receive Date: 20220512
  Receipt Date: 20220512
  Transmission Date: 20220720
  Serious: Yes (Hospitalization)
  Sender: FDA-Public Use
  Company Number: GB-ROCHE-3096052

PATIENT

DRUGS (3)
  1. CAPECITABINE [Suspect]
     Active Substance: CAPECITABINE
     Indication: Neoplasm malignant
     Dosage: COMPLETED 1 CYCLE
     Route: 048
  2. CAPECITABINE [Suspect]
     Active Substance: CAPECITABINE
     Dosage: COMPLETED 1 CYCLE
     Route: 048
  3. OXALIPLATIN [Suspect]
     Active Substance: OXALIPLATIN
     Indication: Neoplasm malignant
     Dosage: COMPLETED 1 CYCLE
     Route: 065

REACTIONS (1)
  - Angina pectoris [Unknown]
